FAERS Safety Report 9668704 (Version 1)
Quarter: 2013Q4

REPORT INFORMATION
  Report Type: Spontaneous
  Country: US (occurrence: US)
  Receive Date: 20131105
  Receipt Date: 20131105
  Transmission Date: 20140711
  Serious: No
  Sender: FDA-Public Use
  Company Number: US-ENDO PHARMACEUTICALS INC.-PRED20130004

PATIENT
  Sex: Male
  Weight: 56.7 kg

DRUGS (1)
  1. PREDNISONE TABLETS, 10MG [Suspect]
     Indication: PRODUCT USED FOR UNKNOWN INDICATION
     Route: 048
     Dates: start: 20121215, end: 20130126

REACTIONS (2)
  - Dandruff [Recovering/Resolving]
  - Myalgia [Recovered/Resolved]
